FAERS Safety Report 8795058 (Version 2)
Quarter: 2015Q2

REPORT INFORMATION
  Report Type: Report from Study
  Country: US (occurrence: US)
  Receive Date: 20120917
  Receipt Date: 20150625
  Transmission Date: 20150821
  Serious: Yes (Death)
  Sender: FDA-Public Use
  Company Number: US-ROCHE-CID000000002088734

PATIENT
  Age: 51 Year
  Sex: Male

DRUGS (11)
  1. CARBOPLATIN. [Concomitant]
     Active Substance: CARBOPLATIN
     Route: 042
  2. KYTRIL [Concomitant]
     Active Substance: GRANISETRON HYDROCHLORIDE
     Route: 065
  3. GEMZAR [Concomitant]
     Active Substance: GEMCITABINE HYDROCHLORIDE
     Route: 042
  4. BENADRYL [Concomitant]
     Active Substance: DIPHENHYDRAMINE HYDROCHLORIDE
     Route: 042
  5. AVASTIN [Suspect]
     Active Substance: BEVACIZUMAB
     Indication: BLADDER CANCER
     Route: 042
     Dates: start: 20060816
  6. NEULASTA [Concomitant]
     Active Substance: PEGFILGRASTIM
     Route: 058
  7. ALOXI [Concomitant]
     Active Substance: PALONOSETRON HYDROCHLORIDE
     Route: 065
  8. ACTIVASE [Concomitant]
     Active Substance: ALTEPLASE
     Route: 065
  9. TAGAMET [Concomitant]
     Active Substance: CIMETIDINE
     Route: 042
  10. ARANESP [Concomitant]
     Active Substance: DARBEPOETIN ALFA
     Route: 058
  11. DEXAMETHASONE. [Concomitant]
     Active Substance: DEXAMETHASONE
     Route: 065

REACTIONS (2)
  - Death [Fatal]
  - Off label use [Unknown]

NARRATIVE: CASE EVENT DATE: 20061020
